FAERS Safety Report 7262239-X (Version None)
Quarter: 2011Q1

REPORT INFORMATION
  Report Type: 
  Country: None (occurrence: None)
  Receive Date: 20110130
  Receipt Date: 20101124
  Transmission Date: 20110831
  Serious: No
  Sender: FDA-Public Use
  Company Number: US-ABBOTT-10P-163-0687728-00

PATIENT
  Age: 61 Year
  Sex: Female

DRUGS (15)
  1. ASPIRIN [Concomitant]
     Indication: PRODUCT USED FOR UNKNOWN INDICATION
  2. SIMVASTATIN [Concomitant]
     Indication: BLOOD CHOLESTEROL INCREASED
  3. B COMPLEX VIT [Concomitant]
     Indication: PRODUCT USED FOR UNKNOWN INDICATION
  4. NORTRIPTYLINE HCL [Concomitant]
     Indication: RHEUMATOID ARTHRITIS
     Dosage: 3 CAPSULES AT NIGHT
  5. CITRACIL WITH VIT D AND MG [Concomitant]
     Indication: PRODUCT USED FOR UNKNOWN INDICATION
  6. HUMIRA [Suspect]
     Indication: CROHN'S DISEASE
     Dates: start: 20101122
  7. NORTRIPTYLINE HCL [Concomitant]
     Indication: NEUROPATHY PERIPHERAL
  8. TRAMADOL HCL [Concomitant]
     Indication: PAIN
     Dosage: 1 TABLET THREE TIMES A DAY AS NEEDED
  9. AMAMDEMDA [Concomitant]
     Indication: MIGRAINE
  10. CENTRUM SILVER [Concomitant]
     Indication: PRODUCT USED FOR UNKNOWN INDICATION
  11. FISH OIL WITH OMEGA 3 [Concomitant]
     Indication: PRODUCT USED FOR UNKNOWN INDICATION
  12. AMALODAL BESYLATE [Concomitant]
     Indication: PRODUCT USED FOR UNKNOWN INDICATION
  13. VIT E [Concomitant]
     Indication: PRODUCT USED FOR UNKNOWN INDICATION
  14. PROVIGIL [Concomitant]
     Indication: PRODUCT USED FOR UNKNOWN INDICATION
  15. GLUCOSAMINE MSM [Concomitant]
     Indication: PRODUCT USED FOR UNKNOWN INDICATION

REACTIONS (1)
  - EPISTAXIS [None]
